FAERS Safety Report 7512626-7 (Version None)
Quarter: 2011Q2

REPORT INFORMATION
  Report Type: 
  Country: None (occurrence: None)
  Receive Date: 20110531
  Receipt Date: 20110519
  Transmission Date: 20111010
  Serious: Yes (Hospitalization)
  Sender: FDA-Public Use
  Company Number: BR-ASTRAZENECA-2011SE31007

PATIENT
  Age: 86 Year
  Sex: Female

DRUGS (8)
  1. ATENOLOL [Suspect]
     Route: 048
     Dates: start: 20110201
  2. SEROQUEL [Suspect]
     Indication: IRRITABILITY
     Route: 048
     Dates: start: 20110201
  3. ATENOLOL [Suspect]
     Indication: HYPERTENSION
     Route: 048
     Dates: end: 20110101
  4. ARIMIDEX [Suspect]
     Indication: BREAST CANCER
     Route: 048
     Dates: start: 20110201
  5. SEROQUEL [Suspect]
     Indication: EATING DISORDER
     Route: 048
     Dates: start: 20110201
  6. SIMVASTATIN [Concomitant]
  7. SEROQUEL [Suspect]
     Indication: WEIGHT DECREASED
     Route: 048
     Dates: start: 20110201
  8. XALACON [Concomitant]

REACTIONS (7)
  - EATING DISORDER [None]
  - BALANCE DISORDER [None]
  - IRRITABILITY [None]
  - BREAST CANCER [None]
  - DIZZINESS [None]
  - WEIGHT DECREASED [None]
  - OFF LABEL USE [None]
